FAERS Safety Report 19726597 (Version 1)
Quarter: 2021Q3

REPORT INFORMATION
  Report Type: Report from Study
  Country: US (occurrence: US)
  Receive Date: 20210820
  Receipt Date: 20210820
  Transmission Date: 20211014
  Serious: Yes (Hospitalization)
  Sender: FDA-Public Use
  Company Number: US-TAIHO ONCOLOGY  INC-EU-2021-02659

PATIENT
  Age: 87 Year
  Sex: Male

DRUGS (15)
  1. SODIUM BICARBONATE. [Concomitant]
     Active Substance: SODIUM BICARBONATE
  2. VITAMIN D3 [Concomitant]
     Active Substance: CHOLECALCIFEROL
  3. ARANESP [Concomitant]
     Active Substance: DARBEPOETIN ALFA
  4. CEFUROXIME. [Concomitant]
     Active Substance: CEFUROXIME
  5. LISINOPRIL. [Concomitant]
     Active Substance: LISINOPRIL
  6. MULTIPLE VIT [Concomitant]
  7. ONDANSETRON [Concomitant]
     Active Substance: ONDANSETRON
  8. LONSURF [Suspect]
     Active Substance: TIPIRACIL HYDROCHLORIDE\TRIFLURIDINE
     Indication: RECTAL CANCER
     Dosage: CURRENT CYCLE UNKNOWN.
     Route: 048
     Dates: start: 20180327
  9. PROPRANOLOL [Concomitant]
     Active Substance: PROPRANOLOL HYDROCHLORIDE
  10. COENZYME Q10 [Concomitant]
     Active Substance: DIETARY SUPPLEMENT\UBIDECARENONE
  11. VITAMINE D [Concomitant]
     Active Substance: CHOLECALCIFEROL
  12. AMLODIPINE [Concomitant]
     Active Substance: AMLODIPINE BESYLATE
  13. B12 COLPIANCE KIT [Concomitant]
  14. PERCOCET [Concomitant]
     Active Substance: ACETAMINOPHEN\OXYCODONE HYDROCHLORIDE
  15. XIFAXAN [Concomitant]
     Active Substance: RIFAXIMIN

REACTIONS (4)
  - Gait inability [Not Recovered/Not Resolved]
  - Cholelithiasis [Not Recovered/Not Resolved]
  - Diarrhoea [Not Recovered/Not Resolved]
  - Hepatic cyst [Not Recovered/Not Resolved]

NARRATIVE: CASE EVENT DATE: 202105
